FAERS Safety Report 24277619 (Version 2)
Quarter: 2024Q4

REPORT INFORMATION
  Report Type: Spontaneous
  Country: PK (occurrence: PK)
  Receive Date: 20240903
  Receipt Date: 20241031
  Transmission Date: 20250115
  Serious: Yes (Other)
  Sender: AMGEN
  Company Number: PK-PFIZER INC-PV202400111715

PATIENT
  Age: 46 Year
  Sex: Male

DRUGS (6)
  1. ENBREL [Suspect]
     Active Substance: ETANERCEPT
     Indication: Ankylosing spondylitis
     Dosage: 50 MG, WEEKLY
     Route: 058
     Dates: start: 202311
  2. ENBREL [Suspect]
     Active Substance: ETANERCEPT
     Indication: Arthritis
     Dosage: UNK
     Route: 065
  3. NEXIUM [Concomitant]
     Active Substance: ESOMEPRAZOLE MAGNESIUM
     Dosage: 40 MG, 1X/DAY
     Route: 065
  4. Celbex [Concomitant]
     Dosage: 100 MG, 2X/DAY
     Route: 065
  5. Distalgesic [Concomitant]
     Dosage: UNK, 2X/DAY
     Route: 065
  6. Rapicort [Concomitant]
     Dosage: 5 MG, 2X/DAY
     Route: 065

REACTIONS (1)
  - Sacroiliitis [Unknown]
